FAERS Safety Report 5168164-2 (Version None)
Quarter: 2006Q4

REPORT INFORMATION
  Report Type: 
  Country: None (occurrence: None)
  Receive Date: 20061208
  Receipt Date: 20061130
  Transmission Date: 20070319
  Serious: Yes (Other)
  Sender: FDA-Public Use
  Company Number: 2006PK02541

PATIENT
  Age: 27284 Day
  Sex: Male

DRUGS (1)
  1. NEXIUM [Suspect]
     Indication: PROPHYLAXIS
     Route: 048
     Dates: start: 20061017, end: 20061022

REACTIONS (2)
  - DISORIENTATION [None]
  - DISTURBANCE IN ATTENTION [None]
